FAERS Safety Report 9549355 (Version 1)
Quarter: 2013Q3

REPORT INFORMATION
  Report Type: Spontaneous
  Country: NO (occurrence: None)
  Receive Date: 20130919
  Receipt Date: 20130919
  Transmission Date: 20140515
  Serious: Yes (Hospitalization)
  Sender: FDA-Public Use
  Company Number: SYM-2013-10712

PATIENT
  Age: 74 Year
  Sex: Male

DRUGS (9)
  1. WELLBUTRIN RETARD [Suspect]
  2. PARACET [Suspect]
     Indication: PRODUCT USED FOR UNKNOWN INDICATION
     Dosage: 4 IN 1 D
  3. LIPITOR [Suspect]
  4. ALBYL-E [Suspect]
     Indication: PRODUCT USED FOR UNKNOWN INDICATION
  5. TOVIAZ [Suspect]
     Indication: PRODUCT USED FOR UNKNOWN INDICATION
  6. EFEXOR DEPOT [Suspect]
     Indication: PRODUCT USED FOR UNKNOWN INDICATION
  7. OMNIC [Suspect]
     Indication: PRODUCT USED FOR UNKNOWN INDICATION
  8. LOSARTAN POTASSIUM [Suspect]
     Indication: PRODUCT USED FOR UNKNOWN INDICATION
  9. PERSANTIN [Suspect]
     Indication: PRODUCT USED FOR UNKNOWN INDICATION
     Dosage: 2 IN 1 D

REACTIONS (9)
  - Urinary retention [None]
  - Listless [None]
  - Fall [None]
  - General physical health deterioration [None]
  - Somnolence [None]
  - Benign prostatic hyperplasia [None]
  - Dry mouth [None]
  - Drug interaction [None]
  - Dizziness [None]
